FAERS Safety Report 10379736 (Version 1)
Quarter: 2014Q3

REPORT INFORMATION
  Report Type: Spontaneous
  Country: JP (occurrence: JP)
  Receive Date: 20140812
  Receipt Date: 20140812
  Transmission Date: 20150326
  Serious: Yes (Other)
  Sender: FDA-Public Use
  Company Number: ALCN2014JP004472

PATIENT

DRUGS (1)
  1. AZOPT [Suspect]
     Active Substance: BRINZOLAMIDE
     Dosage: 1 GTT, QD
     Route: 047

REACTIONS (6)
  - Iritis [Recovered/Resolved]
  - Corneal oedema [Recovered/Resolved]
  - Punctate keratitis [Recovering/Resolving]
  - Ocular hyperaemia [Recovered/Resolved]
  - Corneal disorder [Recovered/Resolved]
  - Vision blurred [Recovered/Resolved]
